FAERS Safety Report 4342844-0 (Version None)
Quarter: 2004Q2

REPORT INFORMATION
  Report Type: 
  Country: None (occurrence: None)
  Receive Date: 20040420
  Receipt Date: 20040420
  Transmission Date: 20050107
  Serious: Yes (Hospitalization, Disabling)
  Sender: FDA-Public Use
  Company Number: None

PATIENT
  Age: 48 Year
  Sex: Female
  Weight: 106.5953 kg

DRUGS (1)
  1. ALEVE [Suspect]
     Indication: MYALGIA
     Dosage: AS DIRECTED   ORAL
     Route: 048
     Dates: start: 20020816, end: 20020817

REACTIONS (8)
  - DEAFNESS UNILATERAL [None]
  - DIFFICULTY IN WALKING [None]
  - FEELING ABNORMAL [None]
  - IMPAIRED DRIVING ABILITY [None]
  - NAUSEA [None]
  - TINNITUS [None]
  - VERTIGO [None]
  - VOMITING [None]
